FAERS Safety Report 4767661-9 (Version None)
Quarter: 2005Q3

REPORT INFORMATION
  Report Type: 
  Country: None (occurrence: None)
  Receive Date: 20050912
  Receipt Date: 20050901
  Transmission Date: 20060218
  Serious: Yes (Life-Threatening, Hospitalization)
  Sender: FDA-Public Use
  Company Number: 2005123283

PATIENT
  Age: 38 Year
  Sex: Female

DRUGS (1)
  1. AZULFIDINE EN-TABS [Suspect]
     Indication: RHEUMATOID ARTHRITIS
     Dosage: 1000 MG, ORAL
     Route: 048
     Dates: start: 20050101, end: 20050829

REACTIONS (3)
  - BILE DUCT OBSTRUCTION [None]
  - CHOLANGITIS [None]
  - EOSINOPHILIA [None]
